FAERS Safety Report 4535473-7 (Version None)
Quarter: 2004Q4

REPORT INFORMATION
  Report Type: 
  Country: None (occurrence: None)
  Receive Date: 20041222
  Receipt Date: 20041007
  Transmission Date: 20050328
  Serious: Yes (Other)
  Sender: FDA-Public Use
  Company Number: US-MERCK-0410USA01207

PATIENT
  Age: 78 Year
  Sex: Female

DRUGS (14)
  1. XANAX [Concomitant]
     Route: 065
  2. FLONASE [Concomitant]
     Route: 065
  3. CLARITIN [Concomitant]
     Route: 065
  4. TOPROL-XL [Concomitant]
     Route: 065
     Dates: start: 20020501
  5. ALTACE [Concomitant]
     Route: 065
     Dates: start: 20020501
  6. DALMANE [Concomitant]
     Route: 065
  7. ASPIRIN [Concomitant]
     Route: 065
  8. INFLUENZA VIRUS VACCINE (UNSPECIFIED) [Concomitant]
     Route: 030
     Dates: start: 20021001
  9. VIOXX [Suspect]
     Indication: ARTHRITIS
     Route: 048
     Dates: start: 19990101, end: 20000501
  10. VIOXX [Suspect]
     Route: 048
  11. SYNTHROID [Concomitant]
     Route: 065
  12. LORAZEPAM [Concomitant]
     Route: 065
  13. FLURAZEPAM [Concomitant]
     Route: 065
  14. ESTRACE [Concomitant]
     Route: 065

REACTIONS (18)
  - BRONCHITIS CHRONIC [None]
  - BUNDLE BRANCH BLOCK LEFT [None]
  - CATARACT [None]
  - CORONARY ARTERY DISEASE [None]
  - DEPRESSION [None]
  - GASTROOESOPHAGEAL REFLUX DISEASE [None]
  - HYPOTRICHOSIS [None]
  - ISCHAEMIC CARDIOMYOPATHY [None]
  - MITRAL VALVE INCOMPETENCE [None]
  - NIGHT CRAMPS [None]
  - OESOPHAGEAL CANDIDIASIS [None]
  - PALPITATIONS [None]
  - PULMONARY HYPERTENSION [None]
  - SILENT MYOCARDIAL INFARCTION [None]
  - TRICUSPID VALVE INCOMPETENCE [None]
  - VERTIGO POSITIONAL [None]
  - VULVAL HAEMORRHAGE [None]
  - WEIGHT DECREASED [None]
